FAERS Safety Report 21957432 (Version 1)
Quarter: 2023Q1

REPORT INFORMATION
  Report Type: Report from Study
  Country: IT (occurrence: IT)
  Receive Date: 20230206
  Receipt Date: 20230206
  Transmission Date: 20230418
  Serious: Yes (Other)
  Sender: FDA-Public Use
  Company Number: None

PATIENT
  Age: 10 Year
  Sex: Male
  Weight: 47 kg

DRUGS (1)
  1. FLURBIPROFEN [Suspect]
     Active Substance: FLURBIPROFEN
     Indication: Stomatitis
     Dosage: 2 DF (1ST ADMINISTRATION AT 10 AM, 2ND AT 10 AM)
     Route: 048
     Dates: start: 20221126, end: 20221126

REACTIONS (2)
  - Face oedema [Recovering/Resolving]
  - Periorbital oedema [Recovering/Resolving]

NARRATIVE: CASE EVENT DATE: 20221126
